FAERS Safety Report 6715675-1 (Version None)
Quarter: 2010Q2

REPORT INFORMATION
  Report Type: 
  Country: None (occurrence: None)
  Receive Date: 20100507
  Receipt Date: 20090723
  Transmission Date: 20101027
  Serious: No
  Sender: FDA-Public Use
  Company Number: A0798454A

PATIENT
  Age: 63 Year
  Sex: Female

DRUGS (2)
  1. DYNACIRC CR [Suspect]
     Indication: HYPERTENSION
     Dosage: 5MG UNKNOWN
     Route: 048
     Dates: start: 20090501
  2. OTHER MEDICATIONS [Concomitant]

REACTIONS (2)
  - HEART RATE IRREGULAR [None]
  - NODAL RHYTHM [None]
